FAERS Safety Report 4787111-6 (Version None)
Quarter: 2005Q4

REPORT INFORMATION
  Report Type: 
  Country: None (occurrence: None)
  Receive Date: 20051004
  Receipt Date: 20050923
  Transmission Date: 20060501
  Serious: Yes (Other)
  Sender: FDA-Public Use
  Company Number: US-GLAXOSMITHKLINE-A0575623A

PATIENT
  Age: 69 Year
  Sex: Female
  Weight: 61 kg

DRUGS (3)
  1. DEBROX DROPS [Suspect]
     Indication: CERUMEN IMPACTION
     Route: 001
     Dates: start: 20050923, end: 20050923
  2. ZOCOR [Concomitant]
  3. VITAMINS [Concomitant]

REACTIONS (2)
  - DEAFNESS [None]
  - SUDDEN HEARING LOSS [None]
